FAERS Safety Report 5934167-0 (Version None)
Quarter: 2008Q4

REPORT INFORMATION
  Report Type: 
  Country: None (occurrence: None)
  Receive Date: 20081029
  Receipt Date: 20081024
  Transmission Date: 20090506
  Serious: Yes (Hospitalization)
  Sender: FDA-Public Use
  Company Number: B0537264A

PATIENT
  Age: 29 Year
  Sex: Female
  Weight: 35 kg

DRUGS (19)
  1. PAXIL [Suspect]
     Indication: DEPRESSION
     Route: 048
  2. CALCIUM CARBONATE WITH VITAMIN D [Suspect]
     Indication: DRUG USE FOR UNKNOWN INDICATION
     Route: 048
     Dates: start: 20080616
  3. BENET [Suspect]
     Indication: DRUG USE FOR UNKNOWN INDICATION
     Route: 048
     Dates: start: 20080616
  4. PREMARIN [Concomitant]
     Route: 065
     Dates: start: 20060201
  5. CALCIUM LACTATE [Concomitant]
     Route: 048
  6. MESTRANOL + NORETHISTERONE [Concomitant]
     Route: 048
     Dates: start: 20060301, end: 20080801
  7. DUPHASTON [Concomitant]
     Route: 048
     Dates: start: 20051001
  8. CHINESE MEDICINE [Concomitant]
     Route: 048
     Dates: start: 20051001
  9. UNKNOWN DRUG [Concomitant]
     Indication: RIB FRACTURE
     Dosage: 120MG PER DAY
     Route: 048
     Dates: start: 20060301, end: 20060101
  10. UNKNOWN DRUG [Concomitant]
     Dosage: 400MG PER DAY
     Route: 048
     Dates: start: 20060301, end: 20060101
  11. CEPHALEXIN [Concomitant]
     Route: 048
  12. UNKNOWN DRUG [Concomitant]
     Route: 048
  13. MEIACT [Concomitant]
     Route: 048
  14. UNKNOWN DRUG [Concomitant]
     Route: 048
     Dates: start: 20070101
  15. CALCIUM LACTATE [Concomitant]
     Route: 048
     Dates: start: 20080616
  16. CALONAL [Concomitant]
     Route: 048
     Dates: start: 20080812
  17. FLOMOX [Concomitant]
     Dosage: 300MG PER DAY
     Route: 048
     Dates: start: 20080821
  18. ACDEAM [Concomitant]
     Dosage: 90MG PER DAY
     Route: 048
     Dates: start: 20080821
  19. COLD MEDICINE [Concomitant]

REACTIONS (39)
  - ASTHMA [None]
  - BLOOD CALCIUM ABNORMAL [None]
  - BLOOD CHLORIDE INCREASED [None]
  - BLOOD CREATININE INCREASED [None]
  - BLOOD POTASSIUM DECREASED [None]
  - BLOOD SODIUM DECREASED [None]
  - BLOOD UREA INCREASED [None]
  - C-REACTIVE PROTEIN INCREASED [None]
  - CACHEXIA [None]
  - DECREASED APPETITE [None]
  - DENTAL CARIES [None]
  - DISORIENTATION [None]
  - DIZZINESS [None]
  - FALL [None]
  - FEELING OF DESPAIR [None]
  - HEADACHE [None]
  - HYPERVENTILATION [None]
  - HYPOACUSIS [None]
  - ILL-DEFINED DISORDER [None]
  - INSOMNIA [None]
  - LYMPHOCYTE COUNT DECREASED [None]
  - MALAISE [None]
  - MENIERE'S DISEASE [None]
  - MENSTRUATION IRREGULAR [None]
  - NEUTROPHIL COUNT INCREASED [None]
  - PROTEINURIA [None]
  - PRURITUS GENERALISED [None]
  - PYREXIA [None]
  - RENAL FAILURE [None]
  - SARCOIDOSIS [None]
  - SEASONAL ALLERGY [None]
  - SWELLING [None]
  - TINNITUS [None]
  - URINE CHLORIDE DECREASED [None]
  - URINE SODIUM DECREASED [None]
  - UTERINE CANCER [None]
  - VOMITING [None]
  - WEIGHT INCREASED [None]
  - WHITE BLOOD CELL COUNT INCREASED [None]
